FAERS Safety Report 5448826-X (Version None)
Quarter: 2007Q3

REPORT INFORMATION
  Report Type: 
  Country: None (occurrence: None)
  Receive Date: 20070911
  Receipt Date: 20070705
  Transmission Date: 20080115
  Serious: No
  Sender: FDA-Public Use
  Company Number: US-BRISTOL-MYERS SQUIBB COMPANY-13836259

PATIENT
  Sex: Female
  Weight: 59 kg

DRUGS (4)
  1. EMSAM [Suspect]
     Indication: DEPRESSION
     Route: 062
  2. EMSAM [Suspect]
     Indication: ANXIETY
     Route: 062
  3. LEVOXYL [Concomitant]
  4. CLONAZEPAM [Concomitant]

REACTIONS (4)
  - AGITATION [None]
  - ANOREXIA [None]
  - NERVOUSNESS [None]
  - WEIGHT DECREASED [None]
